FAERS Safety Report 4809158-3 (Version None)
Quarter: 2005Q4

REPORT INFORMATION
  Report Type: 
  Country: None (occurrence: None)
  Receive Date: 20051021
  Receipt Date: 20030227
  Transmission Date: 20060501
  Serious: No
  Sender: FDA-Public Use
  Company Number: EWC030334105

PATIENT
  Age: 46 Year
  Sex: Male

DRUGS (7)
  1. OLANZAPINE [Suspect]
     Indication: SCHIZOAFFECTIVE DISORDER
     Dosage: 12.5 MG/DAY
     Dates: start: 20000524
  2. ERYTHROMYCIN [Concomitant]
  3. VENTOLIN [Concomitant]
  4. FLIXOTIDE (FLUTICASONE PROPIONATE) [Concomitant]
  5. QUININE SULPHATE [Concomitant]
  6. PARADEX [Concomitant]
  7. LAMISIL [Concomitant]

REACTIONS (2)
  - LYMPHOCYTE COUNT DECREASED [None]
  - WHITE BLOOD CELL COUNT DECREASED [None]
